FAERS Safety Report 6887630-2 (Version None)
Quarter: 2010Q3

REPORT INFORMATION
  Report Type: 
  Country: None (occurrence: None)
  Receive Date: 20100730
  Receipt Date: 20100719
  Transmission Date: 20110219
  Serious: Yes (Other)
  Sender: FDA-Public Use
  Company Number: US-BAYER-201026194NA

PATIENT
  Age: 47 Year
  Sex: Female

DRUGS (4)
  1. BETASERON [Suspect]
     Indication: MULTIPLE SCLEROSIS
     Dosage: TOTAL DAILY DOSE: 8 MIU
     Route: 058
     Dates: start: 20090923
  2. SYNTHROID [Concomitant]
     Indication: THYROID DISORDER
  3. PRAVASTATIN [Concomitant]
     Indication: BLOOD CHOLESTEROL ABNORMAL
  4. IRON SUPPLEMENT [Concomitant]
     Indication: BLOOD COUNT ABNORMAL

REACTIONS (3)
  - BLOOD COUNT ABNORMAL [None]
  - INJECTION SITE RASH [None]
  - UTERINE ENLARGEMENT [None]
